FAERS Safety Report 23502082 (Version 1)
Quarter: 2024Q1

REPORT INFORMATION
  Report Type: Report from Study
  Country: US (occurrence: US)
  Receive Date: 20240208
  Receipt Date: 20240208
  Transmission Date: 20240410
  Serious: Yes (Other)
  Sender: FDA-Public Use
  Company Number: US-Eisai-EC-2024-158649

PATIENT
  Age: 71 Year
  Sex: Male
  Weight: 55 kg

DRUGS (13)
  1. LENVIMA [Suspect]
     Active Substance: LENVATINIB
     Indication: Renal cancer
     Dosage: STOPPED: //2023 (REPORTED ON 09/18/2023 NOT TAKING).
     Route: 048
     Dates: start: 20230614
  2. LENVIMA [Suspect]
     Active Substance: LENVATINIB
     Dosage: STOPPED: //2023?(REPORTED ON 10/11/2023 PATIENT WAS NOT TAKING).
     Route: 048
     Dates: start: 20230921
  3. KEYTRUDA [Suspect]
     Active Substance: PEMBROLIZUMAB
     Indication: Renal cancer
     Dosage: STOPPED: //2023?PATIENT REPORTED ON 09/18/2023, WAS NOT TAKING
     Route: 042
     Dates: start: 20230614
  4. FLORINEF ACETATE [Concomitant]
     Active Substance: FLUDROCORTISONE ACETATE
  5. JANUVIA [Concomitant]
     Active Substance: SITAGLIPTIN PHOSPHATE
  6. KEPPRA [Concomitant]
     Active Substance: LEVETIRACETAM
  7. SYNTHROID [Concomitant]
     Active Substance: LEVOTHYROXINE SODIUM
  8. PROAMATINE [Concomitant]
     Active Substance: MIDODRINE HYDROCHLORIDE
     Dates: start: 20230803, end: 20231018
  9. KLOR-CON [Concomitant]
     Active Substance: POTASSIUM CHLORIDE
     Dates: start: 20230518, end: 20231018
  10. FOLVITE [Concomitant]
     Active Substance: FOLIC ACID
     Dates: start: 20230518, end: 20231018
  11. STRATTERA [Concomitant]
     Active Substance: ATOMOXETINE HYDROCHLORIDE
     Dates: start: 20230508, end: 20231018
  12. GLUCOPHAGE [Concomitant]
     Active Substance: METFORMIN HYDROCHLORIDE
     Dates: start: 20230414, end: 20231018
  13. SODIUM CHLORIDE [Concomitant]
     Active Substance: SODIUM CHLORIDE
     Dosage: STOPPED: //2023  (PATIENT NOT TAKING REPORTED ON OCT/11/2023).
     Dates: start: 20230518

REACTIONS (1)
  - Adrenal insufficiency [Recovering/Resolving]

NARRATIVE: CASE EVENT DATE: 20230101
